FAERS Safety Report 6779277-3 (Version None)
Quarter: 2010Q2

REPORT INFORMATION
  Report Type: 
  Country: None (occurrence: None)
  Receive Date: 20100618
  Receipt Date: 20100609
  Transmission Date: 20101027
  Serious: Yes (Hospitalization)
  Sender: FDA-Public Use
  Company Number: US-CEPHALON-2010002908

PATIENT
  Age: 64 Year
  Sex: Male
  Weight: 102 kg

DRUGS (8)
  1. FENTORA [Suspect]
     Indication: METASTATIC PAIN
     Route: 048
     Dates: start: 20100226, end: 20100305
  2. AXITINIB [Concomitant]
     Indication: METASTATIC RENAL CELL CARCINOMA
     Route: 048
     Dates: start: 20100216
  3. LASIX [Concomitant]
     Dates: start: 19990101
  4. ACTOS [Concomitant]
     Dates: start: 19990101
  5. GLUCOPHAGE [Concomitant]
  6. PROCHLORPERAZINE MALEATE [Concomitant]
     Dates: start: 20100228
  7. DIOVAN HCT [Concomitant]
     Dates: start: 20100218
  8. SENOKOT [Concomitant]
     Dates: start: 20100201

REACTIONS (6)
  - ACCIDENTAL OVERDOSE [None]
  - CONFUSIONAL STATE [None]
  - DEHYDRATION [None]
  - DRUG PRESCRIBING ERROR [None]
  - INTENTIONAL DRUG MISUSE [None]
  - SOMNOLENCE [None]
